FAERS Safety Report 7659793-2 (Version None)
Quarter: 2011Q3

REPORT INFORMATION
  Report Type: 
  Country: None (occurrence: None)
  Receive Date: 20110805
  Receipt Date: 20101025
  Transmission Date: 20111222
  Serious: No
  Sender: FDA-Public Use
  Company Number: US-ABBOTT-10P-163-0681697-00

PATIENT
  Sex: Female
  Weight: 51.302 kg

DRUGS (2)
  1. SEROQUEL [Concomitant]
     Indication: INSOMNIA
  2. DEPAKOTE ER [Suspect]
     Indication: BIPOLAR DISORDER
     Dates: start: 20100701

REACTIONS (4)
  - MEDICATION RESIDUE [None]
  - FEELING ABNORMAL [None]
  - DEPRESSION [None]
  - DRUG INEFFECTIVE [None]
